FAERS Safety Report 7746036-4 (Version None)
Quarter: 2011Q3

REPORT INFORMATION
  Report Type: 
  Country: None (occurrence: None)
  Receive Date: 20110913
  Receipt Date: 20110520
  Transmission Date: 20111222
  Serious: Yes (Other)
  Sender: FDA-Public Use
  Company Number: CA-ELI_LILLY_AND_COMPANY-CA201105007991

PATIENT
  Sex: Female

DRUGS (3)
  1. IMOVANE [Concomitant]
     Indication: INSOMNIA
     Dosage: 7.5 MG
  2. CYMBALTA [Suspect]
     Indication: MAJOR DEPRESSION
     Dosage: 60 MG, UNK
     Dates: end: 20100901
  3. SEROQUEL [Concomitant]
     Indication: SLEEP DISORDER
     Dosage: 25 MG, UNK

REACTIONS (1)
  - ALANINE AMINOTRANSFERASE INCREASED [None]
